FAERS Safety Report 18825027 (Version 1)
Quarter: 2021Q1

REPORT INFORMATION
  Report Type: Spontaneous
  Country: GB (occurrence: GB)
  Receive Date: 20210201
  Receipt Date: 20210201
  Transmission Date: 20210419
  Serious: Yes (Other)
  Sender: FDA-Public Use
  Company Number: GB-TEVA-2021-GB-1872534

PATIENT
  Age: 24 Year
  Sex: Male
  Weight: 114 kg

DRUGS (1)
  1. LAMOTRIGINE. [Suspect]
     Active Substance: LAMOTRIGINE
     Indication: EPILEPSY
     Dosage: 150 MILLIGRAM DAILY; LAST 6 YEARS
     Route: 065
     Dates: start: 2014

REACTIONS (1)
  - Loss of consciousness [Recovering/Resolving]
